FAERS Safety Report 7536875-7 (Version None)
Quarter: 2011Q2

REPORT INFORMATION
  Report Type: 
  Country: None (occurrence: None)
  Receive Date: 20110609
  Receipt Date: 20110601
  Transmission Date: 20111010
  Serious: Yes (Life-Threatening)
  Sender: FDA-Public Use
  Company Number: JP-ROCHE-780905

PATIENT
  Age: 47 Year
  Sex: Male

DRUGS (17)
  1. DOGMATYL [Concomitant]
     Dosage: DOSE FORM REPORTED: PERORAL AGENT.
     Route: 048
     Dates: start: 20030131
  2. SELBEX [Concomitant]
     Route: 048
  3. SINLESTAL [Concomitant]
     Route: 048
     Dates: start: 20030131
  4. MYCOPHENOLATE MEFETIL [Suspect]
     Route: 048
     Dates: start: 20030131
  5. NORVASC [Concomitant]
     Route: 048
     Dates: start: 20030131
  6. SULFAMETHOXAZOLE [Concomitant]
     Route: 048
     Dates: start: 20030131
  7. BUFFERIN [Concomitant]
     Route: 048
     Dates: start: 20030131
  8. MYCOPHENOLATE MEFETIL [Suspect]
     Route: 048
     Dates: start: 19990501
  9. SOLU-MEDROL [Concomitant]
     Route: 041
     Dates: start: 19990501
  10. NEORAL [Concomitant]
     Route: 048
     Dates: start: 20030131
  11. ENALAPRIL MALEATE [Concomitant]
     Route: 048
     Dates: start: 20030131
  12. PRAVASTATIN SODIUM [Concomitant]
     Route: 048
     Dates: start: 20030131
  13. LASIX [Concomitant]
     Route: 048
     Dates: start: 20030131
  14. ALLOZYM [Concomitant]
     Route: 048
     Dates: start: 20030131
  15. ORTHOCLONE OKT3 [Concomitant]
     Route: 042
     Dates: start: 19990301
  16. FERROUS CITRATE [Concomitant]
     Route: 048
     Dates: start: 20030131
  17. FAMOTIDINE [Concomitant]
     Route: 048
     Dates: start: 20030131

REACTIONS (5)
  - PYREXIA [None]
  - TRICUSPID VALVE INCOMPETENCE [None]
  - DIARRHOEA [None]
  - NASOPHARYNGITIS [None]
  - SLEEP APNOEA SYNDROME [None]
